FAERS Safety Report 8886605 (Version 1)
Quarter: 2012Q4

REPORT INFORMATION
  Report Type: 
  Country: MX (occurrence: MX)
  Receive Date: 20121105
  Receipt Date: 20121105
  Transmission Date: 20130627
  Serious: Yes (Other)
  Sender: FDA-Public Use
  Company Number: PHHY2012MX099747

PATIENT
  Sex: Male

DRUGS (3)
  1. EXFORGE HCT [Suspect]
     Indication: HYPERTENSION
     Dosage: 1 DF(320/10/25 mg), per day
     Dates: start: 201209
  2. CO-DIOVAN [Suspect]
  3. MINIPRESS [Concomitant]
     Indication: BLOOD PRESSURE MANAGEMENT
     Dosage: 1 DF, per day
     Dates: start: 201209

REACTIONS (3)
  - Infarction [Recovered/Resolved]
  - Kidney infection [Recovered/Resolved]
  - Hypotension [Recovered/Resolved]
